FAERS Safety Report 15741277 (Version 2)
Quarter: 2019Q1

REPORT INFORMATION
  Report Type: Spontaneous
  Country: GB (occurrence: GB)
  Receive Date: 20181219
  Receipt Date: 20190114
  Transmission Date: 20190417
  Serious: Yes (Death)
  Sender: FDA-Public Use
  Company Number: GB-BEH-2018097853

PATIENT
  Age: 48 Year
  Sex: Male

DRUGS (3)
  1. RIBAVIRIN. [Suspect]
     Active Substance: RIBAVIRIN
     Route: 065
  2. HUMAN IMMUNOGLOBULIN (NC) [Suspect]
     Active Substance: HUMAN IMMUNOGLOBULIN G
     Indication: GASTROENTERITIS NOROVIRUS
     Route: 042
  3. NITAZOXANIDE [Suspect]
     Active Substance: NITAZOXANIDE
     Route: 065

REACTIONS (1)
  - Drug ineffective for unapproved indication [Fatal]
